FAERS Safety Report 4735998-5 (Version None)
Quarter: 2005Q3

REPORT INFORMATION
  Report Type: 
  Country: None (occurrence: None)
  Receive Date: 20050805
  Receipt Date: 20050309
  Transmission Date: 20060218
  Serious: Yes (Hospitalization, Disabling)
  Sender: FDA-Public Use
  Company Number: US-MERCK-0503USA01950

PATIENT
  Age: 55 Year
  Sex: Female
  Weight: 91 kg

DRUGS (7)
  1. VIOXX [Suspect]
     Route: 048
     Dates: start: 20010701, end: 20030218
  2. ESTRATEST [Concomitant]
     Route: 065
     Dates: end: 20030218
  3. CLARITIN [Concomitant]
     Route: 065
  4. ADVAIR DISKUS 100/50 [Concomitant]
     Route: 065
  5. DETROL [Concomitant]
     Route: 065
  6. NEXIUM [Concomitant]
     Route: 065
  7. HYDROCHLOROTHIAZIDE [Concomitant]
     Route: 065

REACTIONS (10)
  - ADVERSE EVENT [None]
  - ANXIETY DISORDER [None]
  - ATONIC URINARY BLADDER [None]
  - BLOOD CHOLESTEROL INCREASED [None]
  - CEREBROVASCULAR ACCIDENT [None]
  - DEPRESSION [None]
  - HEADACHE [None]
  - HERNIA [None]
  - HYPERTENSION [None]
  - MITRAL VALVE PROLAPSE [None]
